FAERS Safety Report 24086098 (Version 3)
Quarter: 2024Q3

REPORT INFORMATION
  Report Type: Report from Study
  Country: US (occurrence: US)
  Receive Date: 20240712
  Receipt Date: 20240726
  Transmission Date: 20241017
  Serious: Yes (Other)
  Sender: AIMMUNE
  Company Number: US-NESTLEHEALTHSCIENCE-2021000097

PATIENT

DRUGS (6)
  1. ZENPEP [Suspect]
     Active Substance: PANCRELIPASE AMYLASE\PANCRELIPASE LIPASE\PANCRELIPASE PROTEASE
     Indication: Pancreatic failure
     Dosage: UNK
     Route: 048
     Dates: start: 20210802
  2. ZENPEP [Suspect]
     Active Substance: PANCRELIPASE AMYLASE\PANCRELIPASE LIPASE\PANCRELIPASE PROTEASE
     Indication: Pancreatolithiasis
     Dosage: 40 000 USP UNITS, 100CT CAPSULES,
     Route: 048
     Dates: start: 202203
  3. ZENPEP [Suspect]
     Active Substance: PANCRELIPASE AMYLASE\PANCRELIPASE LIPASE\PANCRELIPASE PROTEASE
     Dosage: 40 000 USP UNITS, 100CT CAPSULES, ONCE, LAST DOSE PRIOR EVENT
     Route: 048
  4. CREON [Concomitant]
     Active Substance: PANCRELIPASE AMYLASE\PANCRELIPASE LIPASE\PANCRELIPASE PROTEASE
     Indication: Pancreatolithiasis
  5. PLEMAZOL [Concomitant]
     Indication: Gastrooesophageal reflux disease
  6. SYNTHROID [Concomitant]
     Active Substance: LEVOTHYROXINE SODIUM
     Indication: Thyroid disorder

REACTIONS (8)
  - Prostate infection [Recovered/Resolved]
  - Urinary tract infection [Recovered/Resolved]
  - Skin warm [Not Recovered/Not Resolved]
  - Erythema [Recovered/Resolved]
  - Pyrexia [Unknown]
  - Urticaria [Recovered/Resolved]
  - Pruritus [Not Recovered/Not Resolved]
  - Weight decreased [Unknown]

NARRATIVE: CASE EVENT DATE: 20210101
